FAERS Safety Report 5762598-0 (Version None)
Quarter: 2008Q2

REPORT INFORMATION
  Report Type: 
  Country: None (occurrence: None)
  Receive Date: 20080609
  Receipt Date: 20080603
  Transmission Date: 20081010
  Serious: Yes (Hospitalization)
  Sender: FDA-Public Use
  Company Number: US-AVENTIS-200812687US

PATIENT
  Sex: Female
  Weight: 51 kg

DRUGS (16)
  1. LOVENOX [Suspect]
     Indication: COLONOSCOPY
     Route: 051
     Dates: start: 20080414, end: 20080425
  2. LOVENOX [Suspect]
     Route: 051
     Dates: start: 20080414, end: 20080425
  3. ASPIRIN [Concomitant]
     Dosage: DOSE: UNK
  4. ATENOLOL [Concomitant]
     Dosage: DOSE: UNK
  5. CALCIUM [Concomitant]
     Dosage: DOSE: UNK
  6. FOLIC ACID [Concomitant]
     Dosage: DOSE: UNK
  7. FOSAMAX [Concomitant]
     Dosage: DOSE: UNK
  8. ISOSORBIDE MONONITRATE [Concomitant]
     Dosage: DOSE: UNK
  9. MTX                                /00113801/ [Concomitant]
     Dosage: DOSE: UNK
  10. M.V.I. [Concomitant]
     Dosage: DOSE: UNK
  11. PLAVIX [Concomitant]
     Dosage: DOSE: UNK
  12. PREDNISONE TAB [Concomitant]
     Dosage: DOSE: UNK
  13. SEROQUEL [Concomitant]
     Dosage: DOSE: UNK
  14. ZOCOR [Concomitant]
     Dosage: DOSE: UNK
  15. WARFARIN SODIUM [Concomitant]
     Dosage: DOSE: 2.5 MG MON, WEDS, FRI
  16. WARFARIN SODIUM [Concomitant]
     Dosage: DOSE: 1.25 MG THURS, SAT, SUN

REACTIONS (4)
  - ASTHENIA [None]
  - DECREASED APPETITE [None]
  - NAUSEA [None]
  - TREMOR [None]
